FAERS Safety Report 8182248-6 (Version None)
Quarter: 2012Q1

REPORT INFORMATION
  Report Type: 
  Country: None (occurrence: None)
  Receive Date: 20120302
  Receipt Date: 20120227
  Transmission Date: 20120608
  Serious: Yes (Other)
  Sender: FDA-Public Use
  Company Number: PHHY2012JP017712

PATIENT
  Sex: Male

DRUGS (2)
  1. CYCLOSPORINE [Suspect]
     Dosage: 150 MG, UNK
  2. PREDNISOLONE [Concomitant]
     Dosage: 5 MG, UNK

REACTIONS (1)
  - COLITIS MICROSCOPIC [None]
